FAERS Safety Report 6922872-9 (Version None)
Quarter: 2010Q3

REPORT INFORMATION
  Report Type: 
  Country: None (occurrence: None)
  Receive Date: 20100813
  Receipt Date: 20100811
  Transmission Date: 20110219
  Serious: Yes (Hospitalization)
  Sender: FDA-Public Use
  Company Number: US-ALEXION-A201000931

PATIENT
  Sex: Male

DRUGS (4)
  1. SOLIRIS [Suspect]
     Indication: PAROXYSMAL NOCTURNAL HAEMOGLOBINURIA
     Dosage: 600 MG, QWX4
     Route: 042
     Dates: start: 20070817, end: 20070907
  2. SOLIRIS [Suspect]
     Dosage: 900 MG, Q2W
     Route: 042
     Dates: start: 20070914
  3. AMOXICILLIN [Concomitant]
     Indication: PROPHYLAXIS
     Dosage: 500 MG, QD
  4. MULTI-VITAMINS [Concomitant]

REACTIONS (13)
  - ANIMAL BITE [None]
  - BLOOD BILIRUBIN INCREASED [None]
  - BLOOD LACTATE DEHYDROGENASE INCREASED [None]
  - BLOOD POTASSIUM INCREASED [None]
  - FATIGUE [None]
  - HEADACHE [None]
  - INFECTION [None]
  - JAUNDICE [None]
  - MALAISE [None]
  - OROPHARYNGEAL PAIN [None]
  - PAROXYSMAL NOCTURNAL HAEMOGLOBINURIA [None]
  - PYREXIA [None]
  - RETICULOCYTE COUNT INCREASED [None]
